FAERS Safety Report 18355829 (Version 1)
Quarter: 2020Q4

REPORT INFORMATION
  Report Type: Report from Study
  Country: US (occurrence: US)
  Receive Date: 20201007
  Receipt Date: 20201007
  Transmission Date: 20210114
  Serious: No
  Sender: FDA-Public Use
  Company Number: US-SHIRE-US202003528

PATIENT
  Age: 68 Year
  Sex: Female

DRUGS (1)
  1. HUMAN NORMAL IMMUNOGLOBULIN; LIQUID 20 [Suspect]
     Active Substance: HUMAN IMMUNOGLOBULIN G
     Indication: PRIMARY IMMUNODEFICIENCY SYNDROME
     Dosage: 10 GRAM, 2X A WEEK
     Route: 065

REACTIONS (7)
  - Infusion site pain [Unknown]
  - Infection [Unknown]
  - Stress [Unknown]
  - Peripheral arterial occlusive disease [Unknown]
  - Infusion site swelling [Unknown]
  - Renal disorder [Not Recovered/Not Resolved]
  - Infusion site urticaria [Recovered/Resolved]

NARRATIVE: CASE EVENT DATE: 20200128
